FAERS Safety Report 6947181-3 (Version None)
Quarter: 2010Q3

REPORT INFORMATION
  Report Type: 
  Country: None (occurrence: None)
  Receive Date: 20100825
  Receipt Date: 20100809
  Transmission Date: 20110219
  Serious: Yes (Hospitalization)
  Sender: FDA-Public Use
  Company Number: 017465

PATIENT
  Age: 78 Year
  Sex: Female
  Weight: 60 kg

DRUGS (9)
  1. KEPPRA [Suspect]
     Indication: EPILEPSY
     Dosage: (500 MG BID), (750 MG BID), (1000 MG BID) (1250 MG BID),  (1500 MG BID ORAL)
     Route: 048
     Dates: start: 20090101, end: 20100201
  2. KEPPRA [Suspect]
     Indication: EPILEPSY
     Dosage: (500 MG BID), (750 MG BID), (1000 MG BID) (1250 MG BID),  (1500 MG BID ORAL)
     Route: 048
     Dates: start: 20100201
  3. KEPPRA [Suspect]
     Indication: EPILEPSY
     Dosage: (500 MG BID), (750 MG BID), (1000 MG BID) (1250 MG BID),  (1500 MG BID ORAL)
     Route: 048
     Dates: start: 20100501
  4. KEPPRA [Suspect]
     Indication: EPILEPSY
     Dosage: (500 MG BID), (750 MG BID), (1000 MG BID) (1250 MG BID),  (1500 MG BID ORAL)
     Route: 048
     Dates: start: 20100701
  5. KEPPRA [Suspect]
     Indication: EPILEPSY
     Dosage: (500 MG BID), (750 MG BID), (1000 MG BID) (1250 MG BID),  (1500 MG BID ORAL)
     Route: 048
     Dates: start: 20100808
  6. LAMICTAL [Concomitant]
  7. PHENHYDAN /00017401/ [Concomitant]
  8. ASPIRIN [Concomitant]
  9. BELOC /00376902/ [Concomitant]

REACTIONS (5)
  - ANXIETY [None]
  - DRUG LEVEL DECREASED [None]
  - DRUG LEVEL INCREASED [None]
  - GAIT DISTURBANCE [None]
  - UNEVALUABLE EVENT [None]
